FAERS Safety Report 18476216 (Version 1)
Quarter: 2020Q4

REPORT INFORMATION
  Report Type: Spontaneous
  Country: CN (occurrence: CN)
  Receive Date: 20201107
  Receipt Date: 20201107
  Transmission Date: 20210114
  Serious: Yes (Other)
  Sender: FDA-Public Use
  Company Number: CN-DRREDDYS-GPV/CHN/20/0128761

PATIENT
  Age: 25 Year
  Sex: Female
  Weight: 40 kg

DRUGS (3)
  1. SODIUM VALPROATE TABLETS [Concomitant]
     Active Substance: VALPROATE SODIUM
     Indication: BIPOLAR DISORDER
     Dosage: 0.200000G,BID
     Route: 048
     Dates: start: 20200928, end: 20201027
  2. OLANZAPINE. [Suspect]
     Active Substance: OLANZAPINE
     Indication: BIPOLAR DISORDER
     Dosage: 5.000000MG,BID
     Route: 048
     Dates: start: 20200928, end: 20201011
  3. OLANZAPINE. [Suspect]
     Active Substance: OLANZAPINE
     Route: 048

REACTIONS (2)
  - Granulocytopenia [Recovering/Resolving]
  - Neutrophil count decreased [Recovering/Resolving]

NARRATIVE: CASE EVENT DATE: 20201011
